FAERS Safety Report 13456760 (Version 1)
Quarter: 2017Q2

REPORT INFORMATION
  Report Type: Report from Study
  Country: DE (occurrence: DE)
  Receive Date: 20170419
  Receipt Date: 20170419
  Transmission Date: 20170830
  Serious: Yes (Other)
  Sender: FDA-Public Use
  Company Number: DE-ADIENNEP-2017AD000078

PATIENT
  Age: 30 Year
  Sex: Male
  Weight: 84.7 kg

DRUGS (4)
  1. THIOTEPA. [Suspect]
     Active Substance: THIOTEPA
     Indication: T-CELL LYMPHOMA
     Dosage: 5 MG/KG DAILY
     Route: 042
     Dates: start: 20160708
  2. MELPHALAN. [Suspect]
     Active Substance: MELPHALAN
     Indication: T-CELL LYMPHOMA
     Dosage: 140 MG/M2 DAILY
     Route: 042
     Dates: start: 20160712
  3. CYTARABINE. [Suspect]
     Active Substance: CYTARABINE
     Indication: T-CELL LYMPHOMA
     Dosage: 200 MG/M2 DAILY
     Route: 042
     Dates: start: 20160708, end: 20160711
  4. ETOPOSIDE. [Suspect]
     Active Substance: ETOPOSIDE
     Indication: T-CELL LYMPHOMA
     Dosage: 200 MG/M2 DAILY
     Route: 042
     Dates: start: 20160708, end: 20160711

REACTIONS (5)
  - Thrombocytopenia [Recovered/Resolved]
  - Anaemia [Recovered/Resolved]
  - Mucosal inflammation [Recovered/Resolved]
  - Febrile neutropenia [Recovered/Resolved]
  - Abdominal pain [Recovered/Resolved]

NARRATIVE: CASE EVENT DATE: 20160708
